FAERS Safety Report 5637375-1 (Version None)
Quarter: 2008Q1

REPORT INFORMATION
  Report Type: 
  Country: None (occurrence: None)
  Receive Date: 20080225
  Receipt Date: 20080211
  Transmission Date: 20080703
  Serious: Yes (Congenital Anomaly)
  Sender: FDA-Public Use
  Company Number: FR-ROCHE-546561

PATIENT
  Age: 24 Year
  Sex: Female

DRUGS (8)
  1. RIVOTRIL [Suspect]
     Indication: DRUG USE FOR UNKNOWN INDICATION
     Dosage: DOSING AMOUNT: 1/2 DOSE
     Route: 048
  2. LYSANXIA [Suspect]
     Indication: DRUG USE FOR UNKNOWN INDICATION
     Dosage: DOSING AMOUNT: 2 DOSES
     Route: 048
  3. PAROXETINE HCL [Suspect]
     Indication: DRUG USE FOR UNKNOWN INDICATION
     Dosage: DOSING REGIMEN: 1 DOSE EVERYDAY. DRUG PAROXETIN TEVA
     Route: 065
  4. LEPTICUR [Suspect]
     Indication: DRUG USE FOR UNKNOWN INDICATION
     Dosage: DOSING AMOUNT: 1 DOSE DRUG LEPTICUR PARK
     Route: 048
  5. LARGACTIL [Suspect]
     Indication: DRUG USE FOR UNKNOWN INDICATION
     Dosage: DOSING AMOUNT 1 DOSE. STRENGTH 25
     Route: 048
  6. SULFARLEM [Suspect]
     Indication: DRUG USE FOR UNKNOWN INDICATION
     Dosage: DRUG NAME SULFAELEM S
     Route: 048
  7. DAFALGAN [Concomitant]
     Indication: PAIN
     Dosage: DOSE UPTO 6 CAPSULES MAXIMUM PER DAY. OTHER INDICATION FEVER
  8. SUBUTEX [Concomitant]
     Dates: end: 20070702

REACTIONS (2)
  - CAUDAL REGRESSION SYNDROME [None]
  - CONGENITAL BLADDER ANOMALY [None]
